FAERS Safety Report 9846706 (Version 1)
Quarter: 2014Q1

REPORT INFORMATION
  Report Type: Spontaneous
  Country: MX (occurrence: MX)
  Receive Date: 20140127
  Receipt Date: 20140127
  Transmission Date: 20141002
  Serious: Yes (Other)
  Sender: FDA-Public Use
  Company Number: PHHY2014MX009738

PATIENT
  Age: 65 Year
  Sex: Female

DRUGS (1)
  1. ACLASTA [Suspect]
     Indication: OSTEOPOROSIS
     Dosage: 5 MG/100 ML ANNUALLY
     Route: 042
     Dates: start: 201101

REACTIONS (7)
  - Pneumonia [Recovered/Resolved]
  - Cough [Unknown]
  - Wheezing [Unknown]
  - Asthenia [Unknown]
  - Fatigue [Unknown]
  - Chest pain [Recovered/Resolved]
  - Hypertension [Unknown]
